FAERS Safety Report 23272068 (Version 1)
Quarter: 2023Q4

REPORT INFORMATION
  Report Type: Spontaneous
  Country: FR (occurrence: FR)
  Receive Date: 20231207
  Receipt Date: 20231207
  Transmission Date: 20240110
  Serious: Yes (Death)
  Sender: FDA-Public Use
  Company Number: FR-AMGEN-FRASP2023133191

PATIENT

DRUGS (2)
  1. CYCLOPHOSPHAMIDE [Suspect]
     Active Substance: CYCLOPHOSPHAMIDE
     Indication: Exposure during pregnancy
     Dosage: UNK, 3 CYCLES
     Route: 064
  2. TRASTUZUMAB [Suspect]
     Active Substance: TRASTUZUMAB
     Indication: Exposure during pregnancy
     Dosage: UNK
     Route: 064

REACTIONS (4)
  - Cleft palate [Fatal]
  - Renal hypoplasia [Fatal]
  - Pulmonary hypoplasia [Fatal]
  - Foetal exposure during pregnancy [Unknown]
